FAERS Safety Report 6663815-5 (Version None)
Quarter: 2010Q2

REPORT INFORMATION
  Report Type: 
  Country: None (occurrence: None)
  Receive Date: 20100401
  Receipt Date: 20100326
  Transmission Date: 20101027
  Serious: Yes (Other)
  Sender: FDA-Public Use
  Company Number: GB-ASTRAZENECA-2010SE11985

PATIENT
  Sex: Female

DRUGS (2)
  1. SEROQUEL XR [Suspect]
     Indication: BIPOLAR DISORDER
     Route: 048
     Dates: start: 20090301
  2. LITHIUM [Suspect]
     Indication: BIPOLAR DISORDER
     Route: 048
     Dates: start: 20090301, end: 20100301

REACTIONS (1)
  - SUPRAVENTRICULAR TACHYCARDIA [None]
